FAERS Safety Report 9646657 (Version 2)
Quarter: 2013Q4

REPORT INFORMATION
  Report Type: Spontaneous
  Country: US (occurrence: US)
  Receive Date: 20131026
  Receipt Date: 20131101
  Transmission Date: 20140711
  Serious: Yes (Other)
  Sender: FDA-Public Use
  Company Number: US-JNJFOC-20131012037

PATIENT
  Sex: Female

DRUGS (2)
  1. ZYRTEC 10MG IR TABLET BONUS 30+10 USA [Suspect]
     Route: 048
  2. ZYRTEC 10MG IR TABLET BONUS 30+10 USA [Suspect]
     Indication: PRURITUS
     Dosage: DAILY FOR ABOUT 2 WEEKS.
     Route: 048

REACTIONS (1)
  - Psoriasis [Not Recovered/Not Resolved]
